FAERS Safety Report 24246439 (Version 1)
Quarter: 2024Q3

REPORT INFORMATION
  Report Type: Spontaneous
  Country: CA (occurrence: CA)
  Receive Date: 20240825
  Receipt Date: 20240825
  Transmission Date: 20241017
  Serious: Yes (Other)
  Sender: BAXTER
  Company Number: CA-BAXTER-2024BAX023353

PATIENT
  Age: 30 Year
  Sex: Female

DRUGS (6)
  1. MAGNESIUM SULFATE [Suspect]
     Active Substance: MAGNESIUM SULFATE\MAGNESIUM SULFATE HEPTAHYDRATE
     Dosage: (DOSAGE FORM: NOT SPECIFIED) AT AN UNSPECIFIED DOSE AND FREQUENCY
     Route: 065
  2. TRANEXAMIC ACID [Suspect]
     Active Substance: TRANEXAMIC ACID
     Dosage: (TRANEXAMIC ACID INJECTION BP) (DOSAGE FORM: SOLUTION INTRAVENOUS) AT AN UNSPECIFIED DOSE AND FREQUE
     Route: 065
  3. FIBRINOGEN [Concomitant]
     Active Substance: FIBRINOGEN HUMAN
     Dosage: (DOSAGE FORM: NOT SPECIFIED)
     Route: 065
  4. NIFEDIPINE [Concomitant]
     Active Substance: NIFEDIPINE
     Dosage: (DOSAGE FORM: TABLET (EXTENDED-RELEASE)  AT AN UNSPECIFIED DOSE AND FREQUENCY
     Route: 065
  5. PLATELETS [Concomitant]
     Active Substance: HUMAN PLATELET, ALLOGENIC
     Dosage: (DOSAGE FORM: NOT SPECIFIED)
     Route: 065
  6. HUMAN RED BLOOD CELL [Concomitant]
     Active Substance: HUMAN RED BLOOD CELL
     Dosage: (DOSAGE FORM: NOT SPECIFIED)
     Route: 065

REACTIONS (6)
  - Acute kidney injury [Recovering/Resolving]
  - Extravasation [Recovering/Resolving]
  - HELLP syndrome [Recovering/Resolving]
  - Haematoma [Recovering/Resolving]
  - Ovarian vein thrombosis [Recovering/Resolving]
  - Pre-eclampsia [Recovering/Resolving]
